FAERS Safety Report 13709880 (Version 2)
Quarter: 2017Q4

REPORT INFORMATION
  Report Type: Report from Study
  Country: US (occurrence: US)
  Receive Date: 20170703
  Receipt Date: 20171003
  Transmission Date: 20180320
  Serious: Yes (Hospitalization, Other)
  Sender: FDA-Public Use
  Company Number: US-ROCHE-1954964

PATIENT
  Age: 69 Year
  Sex: Female
  Weight: 67.6 kg

DRUGS (10)
  1. RITUXIMAB. [Suspect]
     Active Substance: RITUXIMAB
     Indication: CHRONIC LYMPHOCYTIC LEUKAEMIA
     Dosage: 6 CYCLES?START DATE OF COURSE ASSOCIATED WITH EXPEDITED REPORT: 06/APR/2011
     Route: 042
     Dates: start: 20110223
  2. RITUXIMAB. [Suspect]
     Active Substance: RITUXIMAB
     Route: 042
     Dates: start: 20110518
  3. PENTOSTATIN. [Suspect]
     Active Substance: PENTOSTATIN
     Indication: CHRONIC LYMPHOCYTIC LEUKAEMIA
     Dosage: OVER 30 MINUTES (6 CYCLES)?START DATE OF COURSE ASSOCIATED WITH EXPEDITED REPORT: 06/APR/2011
     Route: 042
     Dates: start: 20110223
  4. PEGFILGRASTIM [Suspect]
     Active Substance: PEGFILGRASTIM
     Route: 058
     Dates: start: 20110518
  5. CYCLOPHOSPHAMIDE. [Suspect]
     Active Substance: CYCLOPHOSPHAMIDE
     Route: 042
     Dates: start: 20110518
  6. BEVACIZUMAB. [Suspect]
     Active Substance: BEVACIZUMAB
     Indication: CHRONIC LYMPHOCYTIC LEUKAEMIA
     Dosage: 30-90 MINUTES ON DAY 1 OF COURSES 1-5 AND ON DAY 1, 22 AND 43 OF COURSE 6 ?8 DOSES?START DATE OF COU
     Route: 042
     Dates: start: 20110223
  7. BEVACIZUMAB. [Suspect]
     Active Substance: BEVACIZUMAB
     Route: 042
     Dates: start: 20110518
  8. PENTOSTATIN. [Suspect]
     Active Substance: PENTOSTATIN
     Route: 042
     Dates: start: 20110518
  9. CYCLOPHOSPHAMIDE. [Suspect]
     Active Substance: CYCLOPHOSPHAMIDE
     Indication: CHRONIC LYMPHOCYTIC LEUKAEMIA
     Dosage: OVER 30 MINUTES (6 CYCLES)?START SATE OF COURSE ASSOCIATED WITH EXPEDITED REPORT: 06/APR/2011
     Route: 042
     Dates: start: 20110223
  10. PEGFILGRASTIM [Suspect]
     Active Substance: PEGFILGRASTIM
     Indication: CHRONIC LYMPHOCYTIC LEUKAEMIA
     Dosage: EVERY CYCLE?START DATE OF COURSE ASSOCIATED WITH EXPEDITED REPORT: 06/APR/2011
     Route: 058
     Dates: start: 20110223

REACTIONS (6)
  - Neutropenia [Unknown]
  - Anaemia [Unknown]
  - Left ventricular dysfunction [Unknown]
  - Neutrophil count decreased [Unknown]
  - Blood disorder [Unknown]
  - Leukopenia [Unknown]

NARRATIVE: CASE EVENT DATE: 20110724
